FAERS Safety Report 4536738-5 (Version None)
Quarter: 2004Q4

REPORT INFORMATION
  Report Type: 
  Country: None (occurrence: None)
  Receive Date: 20041223
  Receipt Date: 20041215
  Transmission Date: 20050328
  Serious: Yes (Hospitalization)
  Sender: FDA-Public Use
  Company Number: FR-JNJFOC-20041002513

PATIENT
  Age: 24 Year
  Sex: Male

DRUGS (3)
  1. HALDOL [Suspect]
     Indication: DELUSION
     Route: 049
  2. NOZINAN [Suspect]
     Indication: DELUSION
     Route: 049
  3. LEPTICUR [Suspect]
     Indication: DRUG USE FOR UNKNOWN INDICATION

REACTIONS (5)
  - BLOOD CREATINE PHOSPHOKINASE INCREASED [None]
  - HEPATIC ENZYME INCREASED [None]
  - HEPATITIS [None]
  - NEUROLEPTIC MALIGNANT SYNDROME [None]
  - PYREXIA [None]
